FAERS Safety Report 4408021-X (Version None)
Quarter: 2004Q3

REPORT INFORMATION
  Report Type: 
  Country: None (occurrence: None)
  Receive Date: 20040726
  Receipt Date: 20040716
  Transmission Date: 20050211
  Serious: Yes (Life-Threatening, Disabling)
  Sender: FDA-Public Use
  Company Number: US-MERCK-0407USA01447

PATIENT
  Age: 44 Year
  Sex: Female

DRUGS (3)
  1. RECOMBIVAX [Concomitant]
     Indication: PROPHYLAXIS
     Route: 065
     Dates: start: 19990101
  2. CRIXIVAN [Suspect]
     Indication: PROPHYLAXIS AGAINST HIV INFECTION
     Route: 048
     Dates: start: 19990101, end: 19990101
  3. COMBIVIR [Suspect]
     Indication: PROPHYLAXIS AGAINST HIV INFECTION
     Route: 065
     Dates: start: 19990101, end: 19990101

REACTIONS (7)
  - CHRONIC FATIGUE SYNDROME [None]
  - DEPRESSION [None]
  - IMMUNE SYSTEM DISORDER [None]
  - INFECTION [None]
  - NAUSEA [None]
  - VOMITING [None]
  - WEIGHT DECREASED [None]
